FAERS Safety Report 22160381 (Version 3)
Quarter: 2024Q4

REPORT INFORMATION
  Report Type: Spontaneous
  Country: JP (occurrence: JP)
  Receive Date: 20230331
  Receipt Date: 20241113
  Transmission Date: 20250114
  Serious: Yes (Other)
  Sender: LUNDBECK
  Company Number: JP-SA-2023SA095685

PATIENT

DRUGS (9)
  1. SABRIL [Suspect]
     Active Substance: VIGABATRIN
     Indication: Infantile spasms
     Dosage: 440 MG/DAY, BID
     Route: 048
     Dates: start: 20211025, end: 20211227
  2. SABRIL [Suspect]
     Active Substance: VIGABATRIN
     Dosage: 350 MG/DAY, BID
     Route: 048
     Dates: start: 20211228, end: 20220216
  3. SABRIL [Suspect]
     Active Substance: VIGABATRIN
     Dosage: 250 MG/DAY, BID
     Route: 048
     Dates: start: 20220217
  4. LACOSAMIDE [Suspect]
     Active Substance: LACOSAMIDE
     Indication: Product used for unknown indication
     Dosage: DAILY DOSE: 100 MG
     Route: 048
     Dates: start: 20211020
  5. LACOSAMIDE [Suspect]
     Active Substance: LACOSAMIDE
     Dosage: DAILY DOSE: 20 MG
     Route: 048
     Dates: start: 20211008, end: 20211010
  6. LACOSAMIDE [Suspect]
     Active Substance: LACOSAMIDE
     Dosage: DAILY DOSE: 40 MG
     Route: 048
     Dates: start: 20211011, end: 20211013
  7. LACOSAMIDE [Suspect]
     Active Substance: LACOSAMIDE
     Dosage: DAILY DOSE: 60 MG
     Route: 048
     Dates: start: 20211014, end: 20211017
  8. LACOSAMIDE [Suspect]
     Active Substance: LACOSAMIDE
     Dosage: DAILY DOSE: 80 MG
     Route: 048
     Dates: start: 20211018, end: 20211019
  9. LACOSAMIDE [Suspect]
     Active Substance: LACOSAMIDE
     Dosage: DAILY DOSE: 100 MG
     Route: 048
     Dates: start: 20211020

REACTIONS (3)
  - Increased bronchial secretion [Recovering/Resolving]
  - Somnolence [Recovering/Resolving]
  - Drug ineffective [Unknown]

NARRATIVE: CASE EVENT DATE: 20211026
